FAERS Safety Report 17898689 (Version 1)
Quarter: 2020Q2

REPORT INFORMATION
  Report Type: Report from Study
  Country: GB (occurrence: GB)
  Receive Date: 20200615
  Receipt Date: 20200615
  Transmission Date: 20200714
  Serious: Yes (Death, Hospitalization)
  Sender: FDA-Public Use
  Company Number: GB-JNJFOC-20200606602

PATIENT
  Age: 36 Year
  Sex: Female
  Weight: 79 kg

DRUGS (12)
  1. HYDROCHLOROTHIAZIDE. [Concomitant]
     Active Substance: HYDROCHLOROTHIAZIDE
     Route: 065
     Dates: start: 20200123, end: 20200423
  2. DERMOVATE [Concomitant]
     Active Substance: CLOBETASOL
     Route: 065
     Dates: start: 20200309, end: 20200423
  3. IBUPROFEN. [Concomitant]
     Active Substance: IBUPROFEN
     Route: 065
     Dates: start: 20190222, end: 20200423
  4. IBUPROFEN. [Concomitant]
     Active Substance: IBUPROFEN
     Route: 065
     Dates: start: 20190222, end: 20200423
  5. MIRTAZAPINE. [Concomitant]
     Active Substance: MIRTAZAPINE
     Route: 065
     Dates: start: 20180821, end: 20200423
  6. PARACETAMOL [Concomitant]
     Active Substance: ACETAMINOPHEN
     Route: 065
     Dates: start: 20190222, end: 20200423
  7. CODEINE [Concomitant]
     Active Substance: CODEINE
     Route: 065
     Dates: start: 20190222, end: 20200423
  8. TINZAPARIN [Concomitant]
     Active Substance: TINZAPARIN
     Route: 065
     Dates: start: 20191030, end: 20200423
  9. STELARA [Suspect]
     Active Substance: USTEKINUMAB
     Indication: PSORIASIS
     Route: 058
     Dates: start: 20170911, end: 20191021
  10. PARACETAMOL [Concomitant]
     Active Substance: ACETAMINOPHEN
     Route: 065
     Dates: start: 20190222, end: 20200423
  11. CODEINE [Concomitant]
     Active Substance: CODEINE
     Route: 065
     Dates: start: 20190222, end: 20200423
  12. XAMIOL                             /06356901/ [Concomitant]
     Active Substance: BETAMETHASONE DIPROPIONATE\CALCIPOTRIENE
     Route: 065
     Dates: start: 20200309, end: 20200423

REACTIONS (2)
  - Neutropenic sepsis [Fatal]
  - Allogenic stem cell transplantation [Fatal]

NARRATIVE: CASE EVENT DATE: 202004
